FAERS Safety Report 5934514-X (Version None)
Quarter: 2008Q4

REPORT INFORMATION
  Report Type: 
  Country: None (occurrence: None)
  Receive Date: 20081029
  Receipt Date: 20081016
  Transmission Date: 20090506
  Serious: Yes (Hospitalization)
  Sender: FDA-Public Use
  Company Number: CH-ELI_LILLY_AND_COMPANY-CH200810004009

PATIENT
  Age: 50 Year
  Sex: Female

DRUGS (4)
  1. CYMBALTA [Suspect]
     Indication: ANXIETY DISORDER
     Dosage: 60 MG, DAILY (1/D) (TAKEN ONLY ONCE)
     Route: 048
     Dates: start: 20080821, end: 20080821
  2. ZESTRIL [Concomitant]
     Indication: HYPERTENSION
     Dosage: 20 MG, DAILY (1/D)
     Route: 048
     Dates: start: 20080301, end: 20080821
  3. LEXOTANIL [Concomitant]
     Dosage: 1.5 MG, UNKNOWN
     Route: 065
     Dates: start: 20080820, end: 20080820
  4. LEXOTANIL [Concomitant]
     Dosage: 3 MG, UNKNOWN
     Route: 065
     Dates: start: 20080821

REACTIONS (5)
  - CONFUSIONAL STATE [None]
  - EPILEPSY [None]
  - GENERAL PHYSICAL HEALTH DETERIORATION [None]
  - HYPONATRAEMIA [None]
  - INAPPROPRIATE ANTIDIURETIC HORMONE SECRETION [None]
